FAERS Safety Report 17519627 (Version 1)
Quarter: 2020Q1

REPORT INFORMATION
  Report Type: Spontaneous
  Country: GB (occurrence: GB)
  Receive Date: 20200310
  Receipt Date: 20200310
  Transmission Date: 20200409
  Serious: Yes (Other)
  Sender: FDA-Public Use
  Company Number: GB-TEVA-2020-GB-1196233

PATIENT
  Age: 82 Year
  Sex: Male

DRUGS (7)
  1. LINEZOLID. [Suspect]
     Active Substance: LINEZOLID
     Indication: CELLULITIS
     Dosage: 600 MG
     Route: 048
     Dates: start: 20200129, end: 20200204
  2. SIMVASTATIN. [Concomitant]
     Active Substance: SIMVASTATIN
  3. BISOPROLOL FUMARATE. [Concomitant]
     Active Substance: BISOPROLOL FUMARATE
  4. RAMIPRIL. [Concomitant]
     Active Substance: RAMIPRIL
  5. CIPROFLOXACIN. [Suspect]
     Active Substance: CIPROFLOXACIN
     Dosage: 1000 MG
     Route: 048
     Dates: start: 20200129, end: 20200204
  6. BUMETANIDE. [Concomitant]
     Active Substance: BUMETANIDE
  7. FOLIC ACID. [Concomitant]
     Active Substance: FOLIC ACID

REACTIONS (3)
  - Hallucination [Unknown]
  - Confusional state [Unknown]
  - Immune thrombocytopenic purpura [Recovering/Resolving]

NARRATIVE: CASE EVENT DATE: 20200209
